FAERS Safety Report 4337690-8 (Version None)
Quarter: 2004Q2

REPORT INFORMATION
  Report Type: 
  Country: None (occurrence: None)
  Receive Date: 20040408
  Receipt Date: 20040402
  Transmission Date: 20050107
  Serious: Yes (Hospitalization)
  Sender: FDA-Public Use
  Company Number: 200411041GDS

PATIENT
  Age: 74 Year
  Sex: Male

DRUGS (13)
  1. ASPIRIN [Suspect]
     Indication: PROPHYLAXIS
     Dosage: 100 MG, QD, ORAL
     Route: 048
  2. HUMAN INSULIN (INSULIN HUMAN) [Suspect]
     Indication: DIABETES MELLITUS NON-INSULIN-DEPENDENT
     Dosage: SUBCUTANEOUS
     Route: 058
     Dates: end: 20040316
  3. HUMAN INSULIN (INSULIN HUMAN) [Suspect]
     Indication: DIABETES MELLITUS NON-INSULIN-DEPENDENT
     Dosage: SUBCUTANEOUS
     Route: 058
     Dates: end: 20040316
  4. INSULIN LISPRUM (INSULIN LISPRO) [Suspect]
     Indication: DIABETES MELLITUS NON-INSULIN-DEPENDENT
     Dosage: SUBCUTANEOUS
     Route: 058
     Dates: end: 20040316
  5. INSULIN BASALE PNH (INSULIN ISOPHANE HUMAN SEMISYNTHETIC) [Suspect]
     Indication: DIABETES MELLITUS NON-INSULIN-DEPENDENT
     Dosage: SUBCUTANEOUS
     Route: 058
     Dates: end: 20040316
  6. TORSEMIDE [Concomitant]
  7. TAMSULOSIN [Concomitant]
  8. IRBESARTAN [Suspect]
  9. ATENOLOL [Concomitant]
  10. CITALOPRAM [Concomitant]
  11. SIMVASTATIN [Concomitant]
  12. ALLOPURINOL [Concomitant]
  13. ZOLPIDEM [Concomitant]

REACTIONS (2)
  - CONFUSIONAL STATE [None]
  - HYPOGLYCAEMIA [None]
